FAERS Safety Report 11757191 (Version 1)
Quarter: 2015Q4

REPORT INFORMATION
  Report Type: Spontaneous
  Country: CH (occurrence: CH)
  Receive Date: 20151120
  Receipt Date: 20151120
  Transmission Date: 20160304
  Serious: Yes (Hospitalization)
  Sender: FDA-Public Use
  Company Number: CH-UCBSA-2015036120

PATIENT
  Age: 31 Year
  Sex: Female
  Weight: 60 kg

DRUGS (4)
  1. CIMZIA [Suspect]
     Active Substance: CERTOLIZUMAB PEGOL
     Indication: PSORIATIC ARTHROPATHY
     Dosage: 200 MG, EV 2 WEEKS(QOW)
     Route: 058
     Dates: start: 20150507
  2. PANTOPRAZOL [Concomitant]
     Active Substance: PANTOPRAZOLE SODIUM
     Indication: PROPHYLAXIS
     Dosage: 20 MG, ONCE DAILY (QD)
     Route: 048
     Dates: start: 20151103
  3. IRFEN [Concomitant]
     Active Substance: IBUPROFEN
     Indication: MASTITIS
     Dosage: 40 MG, 3X/DAY (TID)
     Route: 048
     Dates: start: 20151018, end: 20151110
  4. AMOXICILLIN AND CLAVULANATE POTASSIUM [Concomitant]
     Active Substance: AMOXICILLIN\CLAVULANATE POTASSIUM
     Indication: MASTITIS
     Dosage: UNK
     Dates: start: 20151102, end: 20151109

REACTIONS (3)
  - Breast feeding [Unknown]
  - Exposure during pregnancy [Unknown]
  - Mastitis [Recovered/Resolved]

NARRATIVE: CASE EVENT DATE: 2015
